FAERS Safety Report 7581286-1 (Version None)
Quarter: 2011Q2

REPORT INFORMATION
  Report Type: 
  Country: None (occurrence: None)
  Receive Date: 20110629
  Receipt Date: 20110622
  Transmission Date: 20111010
  Serious: Yes (Other)
  Sender: FDA-Public Use
  Company Number: US-ROCHE-785058

PATIENT
  Sex: Male

DRUGS (1)
  1. ACCUTANE [Suspect]
     Indication: ACNE
     Dosage: DRUG STARTED IN APPROXIMATELY 1993 OR 1994
     Route: 065

REACTIONS (1)
  - GASTROINTESTINAL INJURY [None]
